FAERS Safety Report 5635241-9 (Version None)
Quarter: 2008Q1

REPORT INFORMATION
  Report Type: 
  Country: None (occurrence: None)
  Receive Date: 20080222
  Receipt Date: 20080220
  Transmission Date: 20080703
  Serious: Yes (Death)
  Sender: FDA-Public Use
  Company Number: JP-BOEHRINGER INGELHEIM GMBH, GERMANY-2008-BP-01903NB

PATIENT
  Sex: Female
  Weight: 45 kg

DRUGS (2)
  1. MICARDIS [Suspect]
     Indication: HYPERTENSION
     Route: 048
     Dates: start: 20061130, end: 20061231
  2. CONIEL [Concomitant]
     Indication: HYPERTENSION
     Route: 048
     Dates: start: 20061130, end: 20061231

REACTIONS (3)
  - ACUTE MYOCARDIAL INFARCTION [None]
  - DEATH [None]
  - MYOCARDIAL RUPTURE [None]
